FAERS Safety Report 12911792 (Version 1)
Quarter: 2016Q4

REPORT INFORMATION
  Report Type: Spontaneous
  Country: US (occurrence: US)
  Receive Date: 20161102
  Receipt Date: 20161102
  Transmission Date: 20170207
  Serious: No
  Sender: FDA-Public Use
  Company Number: None

PATIENT
  Age: 52 Year
  Sex: Female

DRUGS (1)
  1. REMICADE [Suspect]
     Active Substance: INFLIXIMAB
     Indication: RHEUMATOID ARTHRITIS
     Dosage: Q6WEEKS
     Route: 042

REACTIONS (3)
  - Urticaria [None]
  - Pruritus [None]
  - Eyelid oedema [None]

NARRATIVE: CASE EVENT DATE: 20161101
